FAERS Safety Report 17063861 (Version 1)
Quarter: 2019Q4

REPORT INFORMATION
  Report Type: Spontaneous
  Country: GB (occurrence: GB)
  Receive Date: 20191122
  Receipt Date: 20191122
  Transmission Date: 20200122
  Serious: Yes (Other)
  Sender: FDA-Public Use
  Company Number: GB-TEVA-2019-GB-1139166

PATIENT
  Age: 55 Year
  Sex: Female
  Weight: 62 kg

DRUGS (11)
  1. VISCOTEARS [Concomitant]
     Active Substance: CARBOMER
     Dosage: ONE DROP
     Dates: start: 20171130
  2. METHOTREXATE. [Concomitant]
     Active Substance: METHOTREXATE
     Dosage: FIVE TABLETS, 12.5 MG
     Dates: start: 20171127
  3. LANSOPRAZOLE. [Concomitant]
     Active Substance: LANSOPRAZOLE
     Dosage: 1 DF
     Dates: start: 20171212
  4. ELLESTE-SOLO [Concomitant]
     Dosage: 1 DF
     Dates: start: 20171127
  5. SIMVASTATIN. [Concomitant]
     Active Substance: SIMVASTATIN
     Dosage: AT NIGHT, 1 DF
     Dates: start: 20171127
  6. HYLO-FORTE [Concomitant]
     Active Substance: HYALURONATE SODIUM
     Dates: start: 20171212
  7. PREDNISOLONE ACETATE. [Concomitant]
     Active Substance: PREDNISOLONE ACETATE
     Dosage: ONE DROP 2-4 TIMES/DAY
     Dates: start: 20171212
  8. PANTOPRAZOLE [Concomitant]
     Active Substance: PANTOPRAZOLE
     Dosage: 1 DF
     Dates: start: 20180509
  9. COLECALCIFEROL [Concomitant]
     Active Substance: CHOLECALCIFEROL
     Dosage: 1 DF
     Dates: start: 20171212
  10. FOLIC ACID. [Concomitant]
     Active Substance: FOLIC ACID
     Dosage: 1 DF
     Dates: start: 20171127
  11. TRIMETHOPRIM. [Suspect]
     Active Substance: TRIMETHOPRIM
     Dosage: 100 MG
     Dates: start: 20171127

REACTIONS (1)
  - Malaise [Unknown]
